FAERS Safety Report 22023045 (Version 1)
Quarter: 2023Q1

REPORT INFORMATION
  Report Type: Spontaneous
  Country: PL (occurrence: PL)
  Receive Date: 20230222
  Receipt Date: 20230222
  Transmission Date: 20230417
  Serious: Yes (Other)
  Sender: FDA-Public Use
  Company Number: PL-JNJFOC-20230245385

PATIENT

DRUGS (1)
  1. IMBRUVICA [Suspect]
     Active Substance: IBRUTINIB
     Indication: Chronic lymphocytic leukaemia
     Route: 048

REACTIONS (17)
  - Atrial fibrillation [Unknown]
  - Klebsiella infection [Unknown]
  - Rash macular [Unknown]
  - Cerebrovascular accident [Unknown]
  - Lung cancer metastatic [Unknown]
  - Chronic lymphocytic leukaemia [Unknown]
  - Palpitations [Unknown]
  - Haemorrhage intracranial [Unknown]
  - Anaemia [Unknown]
  - Cognitive disorder [Unknown]
  - Cerebral haemorrhage [Unknown]
  - Abdominal pain [Unknown]
  - Rash maculo-papular [Unknown]
  - Myelodysplastic syndrome [Unknown]
  - Multiple organ dysfunction syndrome [Unknown]
  - Pneumonia [Unknown]
  - Non-small cell lung cancer [Unknown]
